FAERS Safety Report 22540552 (Version 1)
Quarter: 2023Q2

REPORT INFORMATION
  Report Type: Spontaneous
  Country: US (occurrence: US)
  Receive Date: 20230609
  Receipt Date: 20230609
  Transmission Date: 20230722
  Serious: No
  Sender: FDA-Public Use
  Company Number: US-PADAGIS-2023PAD00798

PATIENT

DRUGS (2)
  1. FLUOCINONIDE [Suspect]
     Active Substance: FLUOCINONIDE
     Indication: Lichen myxoedematosus
     Dosage: UNK
     Route: 065
  2. MOMETASONE FUROATE [Suspect]
     Active Substance: MOMETASONE FUROATE
     Indication: Lichen myxoedematosus
     Dosage: UNK
     Route: 065

REACTIONS (1)
  - Treatment failure [Unknown]
